FAERS Safety Report 17661257 (Version 1)
Quarter: 2020Q2

REPORT INFORMATION
  Report Type: Spontaneous
  Country: US (occurrence: US)
  Receive Date: 20200413
  Receipt Date: 20200413
  Transmission Date: 20200713
  Serious: Yes (Hospitalization)
  Sender: FDA-Public Use
  Company Number: US-MYLANLABS-2020M1035447

PATIENT
  Age: 55 Year
  Sex: Male

DRUGS (5)
  1. CYANOCOBALAMIN. [Suspect]
     Active Substance: CYANOCOBALAMIN
     Indication: SUPPLEMENTATION THERAPY
     Dosage: UNK
     Route: 065
  2. IRON SUCROSE [Suspect]
     Active Substance: IRON SUCROSE
     Indication: SUPPLEMENTATION THERAPY
     Dosage: 100 MILLIGRAM, QD
     Route: 042
  3. FOLIC ACID. [Suspect]
     Active Substance: FOLIC ACID
     Indication: SUPPLEMENTATION THERAPY
     Dosage: UNK
     Route: 065
  4. IBUPROFEN. [Suspect]
     Active Substance: IBUPROFEN
     Indication: MYALGIA
     Dosage: UNK
     Route: 065
  5. DARBEPOETIN ALFA [Suspect]
     Active Substance: DARBEPOETIN ALFA
     Indication: SUPPLEMENTATION THERAPY
     Dosage: 100 MICROGRAM, QD
     Route: 058

REACTIONS (8)
  - Gastrointestinal haemorrhage [Recovered/Resolved]
  - Drug ineffective [Unknown]
  - Fall [Recovering/Resolving]
  - Bedridden [Recovering/Resolving]
  - Gastric ulcer [Recovering/Resolving]
  - Syncope [Recovering/Resolving]
  - Melaena [Recovered/Resolved]
  - Anaemia [Recovering/Resolving]
